FAERS Safety Report 22752894 (Version 3)
Quarter: 2023Q4

REPORT INFORMATION
  Report Type: Spontaneous
  Country: US (occurrence: US)
  Receive Date: 20230726
  Receipt Date: 20231011
  Transmission Date: 20240110
  Serious: Yes (Hospitalization, Other)
  Sender: FDA-Public Use
  Company Number: US-VERTEX PHARMACEUTICALS-2023-010740

PATIENT
  Age: 13 Year
  Sex: Female

DRUGS (1)
  1. TRIKAFTA [Suspect]
     Active Substance: ELEXACAFTOR\IVACAFTOR\TEZACAFTOR
     Indication: Cystic fibrosis
     Dosage: 2 TABS AM, 1 TAB PM
     Route: 048
     Dates: start: 20221229, end: 20230509

REACTIONS (2)
  - Suicide attempt [Unknown]
  - Major depression [Recovering/Resolving]

NARRATIVE: CASE EVENT DATE: 20230401
